FAERS Safety Report 24214123 (Version 1)
Quarter: 2024Q3

REPORT INFORMATION
  Report Type: Spontaneous
  Country: MX (occurrence: MX)
  Receive Date: 20240815
  Receipt Date: 20240815
  Transmission Date: 20241017
  Serious: Yes (Hospitalization)
  Sender: AMGEN
  Company Number: MX-AMGEN-MEXSP2024158495

PATIENT
  Sex: Female

DRUGS (1)
  1. PEGFILGRASTIM [Suspect]
     Active Substance: PEGFILGRASTIM
     Indication: Prophylaxis
     Dosage: UNK
     Route: 065
     Dates: start: 2024, end: 2024

REACTIONS (9)
  - Anxiety [Unknown]
  - Nervousness [Unknown]
  - Depression [Unknown]
  - Constipation [Unknown]
  - Vomiting [Unknown]
  - Arthralgia [Unknown]
  - Nausea [Unknown]
  - Headache [Unknown]
  - Bone pain [Unknown]

NARRATIVE: CASE EVENT DATE: 20240101
